FAERS Safety Report 4498608-0 (Version None)
Quarter: 2004Q4

REPORT INFORMATION
  Report Type: 
  Country: None (occurrence: None)
  Receive Date: 20041108
  Receipt Date: 20041027
  Transmission Date: 20050328
  Serious: Yes (Hospitalization)
  Sender: FDA-Public Use
  Company Number: 2004-BP-06980BP

PATIENT
  Age: 90 Year
  Sex: Male

DRUGS (13)
  1. COMBIVENT [Suspect]
     Indication: CHRONIC OBSTRUCTIVE AIRWAYS DISEASE
     Dosage: SEE IMAGE
     Route: 055
     Dates: start: 20040824
  2. COMBIVENT [Suspect]
     Indication: EMPHYSEMA
     Dosage: SEE IMAGE
     Route: 055
     Dates: start: 20040824
  3. COMBIVENT [Suspect]
  4. ALBUTEROL SULFATE [Concomitant]
  5. SEREVENT [Concomitant]
  6. IPRATROPIUM BROMIDE [Concomitant]
  7. PLAVIX [Concomitant]
  8. BAYER [Concomitant]
  9. FUROSEMIDE [Concomitant]
  10. AVAPRO [Concomitant]
  11. CENTRUM SILVER (CENTRUM SILVER) [Concomitant]
  12. VITAMIN E [Concomitant]
  13. COD LIVER OIL (COD-LIVER OIL) [Concomitant]

REACTIONS (6)
  - ABASIA [None]
  - DRUG INEFFECTIVE [None]
  - DYSPNOEA EXACERBATED [None]
  - PHARMACEUTICAL PRODUCT COMPLAINT [None]
  - PNEUMONIA [None]
  - PULMONARY CONGESTION [None]
